FAERS Safety Report 6127250-0 (Version None)
Quarter: 2009Q1

REPORT INFORMATION
  Report Type: 
  Country: None (occurrence: None)
  Receive Date: 20090317
  Receipt Date: 20090226
  Transmission Date: 20090719
  Serious: Yes (Other)
  Sender: FDA-Public Use
  Company Number: 2009S1003424

PATIENT
  Age: 67 Year
  Sex: Female

DRUGS (6)
  1. AMIODARONE HCL [Suspect]
     Indication: ATRIAL FIBRILLATION
     Dosage: 200 MG;TWICE A DAY;
  2. ATENOLOL [Concomitant]
  3. CARBIMAZOLE [Concomitant]
  4. FLECAINIDE ACETATE [Concomitant]
  5. HYDROFLUMETHIAZIDE [Concomitant]
  6. SPIRONOLACTONE [Concomitant]

REACTIONS (8)
  - BURNING SENSATION [None]
  - ERYTHEMA [None]
  - HYPERSENSITIVITY [None]
  - OEDEMA [None]
  - PHOTOSENSITIVITY REACTION [None]
  - SEBORRHOEIC DERMATITIS [None]
  - SKIN DEPIGMENTATION [None]
  - SKIN DISCOLOURATION [None]
